FAERS Safety Report 4377248-8 (Version None)
Quarter: 2004Q2

REPORT INFORMATION
  Report Type: 
  Country: None (occurrence: None)
  Receive Date: 20040614
  Receipt Date: 20040614
  Transmission Date: 20050107
  Serious: Yes (Disabling)
  Sender: FDA-Public Use
  Company Number: None

PATIENT
  Age: 46 Year
  Sex: Male
  Weight: 79.3795 kg

DRUGS (1)
  1. CIALIS [Suspect]
     Dosage: 20 MG AND 10 MG 1 EVERY ORAL
     Route: 048
     Dates: start: 20040201, end: 20040610

REACTIONS (2)
  - BACK PAIN [None]
  - DIFFICULTY IN WALKING [None]
